FAERS Safety Report 9688329 (Version 1)
Quarter: 2013Q4

REPORT INFORMATION
  Report Type: Spontaneous
  Country: US (occurrence: None)
  Receive Date: 20131113
  Receipt Date: 20131113
  Transmission Date: 20140711
  Serious: Yes (Disabling)
  Sender: FDA-Public Use
  Company Number: None

PATIENT
  Sex: 0

DRUGS (13)
  1. TAMOXIFEN [Suspect]
     Indication: PROPHYLAXIS
     Dosage: 20 MG 1 PILL PER DAY ONCE DAILY MOUTH
     Route: 048
     Dates: start: 2009
  2. TAMOXIFEN [Suspect]
     Indication: BREAST CANCER
     Dosage: 20 MG 1 PILL PER DAY ONCE DAILY MOUTH
     Route: 048
     Dates: start: 2009
  3. ABILIFY [Concomitant]
  4. PERPHENAZINE [Concomitant]
  5. TAMOXIFEN [Concomitant]
  6. HALDOPERIDOL [Concomitant]
  7. GABAPENTIN [Concomitant]
  8. BENZTROPINE [Concomitant]
  9. LAMOTRIGENE [Concomitant]
  10. MULTI VITAMIN [Concomitant]
  11. IRON [Concomitant]
  12. FISH OIL [Concomitant]
  13. VITAMIN C [Concomitant]

REACTIONS (2)
  - Muscle spasms [None]
  - Chest pain [None]
